FAERS Safety Report 8111351-1 (Version None)
Quarter: 2012Q1

REPORT INFORMATION
  Report Type: 
  Country: None (occurrence: None)
  Receive Date: 20120203
  Receipt Date: 20110919
  Transmission Date: 20120608
  Serious: No
  Sender: FDA-Public Use
  Company Number: US-GLAXOSMITHKLINE-A0945687A

PATIENT
  Age: 60 Year
  Sex: Female

DRUGS (1)
  1. LAMICTAL [Suspect]
     Route: 065
     Dates: start: 20101101, end: 20110227

REACTIONS (5)
  - FEELING ABNORMAL [None]
  - BALANCE DISORDER [None]
  - ILL-DEFINED DISORDER [None]
  - FALL [None]
  - DIZZINESS [None]
